FAERS Safety Report 10807152 (Version 1)
Quarter: 2015Q1

REPORT INFORMATION
  Report Type: Report from Study
  Country: US (occurrence: US)
  Receive Date: 20150217
  Receipt Date: 20150217
  Transmission Date: 20150721
  Serious: No
  Sender: FDA-Public Use
  Company Number: US-ABBVIE-14K-163-1248416-00

PATIENT
  Age: 60 Year
  Sex: Male

DRUGS (27)
  1. NEXIUM [Concomitant]
     Active Substance: ESOMEPRAZOLE MAGNESIUM
     Indication: HORMONE REPLACEMENT THERAPY
  2. LIPITOR [Concomitant]
     Active Substance: ATORVASTATIN CALCIUM
     Indication: BLOOD CHOLESTEROL
  3. FINASTERIDE. [Concomitant]
     Active Substance: FINASTERIDE
     Indication: PROSTATIC DISORDER
  4. PENICILLIN NOS [Suspect]
     Active Substance: PENICILLIN
     Indication: GINGIVAL SWELLING
  5. HCTZ [Concomitant]
     Active Substance: HYDROCHLOROTHIAZIDE
     Indication: HYPERTENSION
  6. ALLOPURINOL. [Concomitant]
     Active Substance: ALLOPURINOL
     Indication: HORMONE REPLACEMENT THERAPY
  7. LIPITOR [Concomitant]
     Active Substance: ATORVASTATIN CALCIUM
     Indication: HORMONE REPLACEMENT THERAPY
  8. NITROGLYCERINE [Concomitant]
     Active Substance: NITROGLYCERIN
     Indication: HORMONE REPLACEMENT THERAPY
  9. METOPROLOL [Concomitant]
     Active Substance: METOPROLOL
     Indication: HYPERTENSION
  10. CARDURA [Concomitant]
     Active Substance: DOXAZOSIN MESYLATE
     Indication: HORMONE REPLACEMENT THERAPY
  11. NEXIUM [Concomitant]
     Active Substance: ESOMEPRAZOLE MAGNESIUM
     Indication: GASTROOESOPHAGEAL REFLUX DISEASE
  12. CARDURA [Concomitant]
     Active Substance: DOXAZOSIN MESYLATE
     Indication: HYPERTENSION
  13. HUMIRA [Suspect]
     Active Substance: ADALIMUMAB
     Indication: PSORIASIS
     Dates: start: 20140202
  14. SYNTHROID [Concomitant]
     Active Substance: LEVOTHYROXINE SODIUM
     Indication: HORMONE REPLACEMENT THERAPY
  15. ZYRTEC [Concomitant]
     Active Substance: CETIRIZINE HYDROCHLORIDE
     Indication: HYPERSENSITIVITY
  16. COZAAR [Concomitant]
     Active Substance: LOSARTAN POTASSIUM
     Indication: HORMONE REPLACEMENT THERAPY
  17. ALLOPURINOL. [Concomitant]
     Active Substance: ALLOPURINOL
     Indication: GOUT
  18. PENICILLIN NOS [Suspect]
     Active Substance: PENICILLIN
     Indication: TOOTHACHE
     Dates: start: 201405
  19. SYNTHROID [Concomitant]
     Active Substance: LEVOTHYROXINE SODIUM
     Indication: HORMONE REPLACEMENT THERAPY
  20. ZYRTEC [Concomitant]
     Active Substance: CETIRIZINE HYDROCHLORIDE
     Indication: HORMONE REPLACEMENT THERAPY
  21. ASA [Concomitant]
     Active Substance: ASPIRIN
     Indication: HORMONE REPLACEMENT THERAPY
  22. COZAAR [Concomitant]
     Active Substance: LOSARTAN POTASSIUM
     Indication: BLOOD CHOLESTEROL
  23. HCTZ [Concomitant]
     Active Substance: HYDROCHLOROTHIAZIDE
     Indication: HORMONE REPLACEMENT THERAPY
  24. ASA [Concomitant]
     Active Substance: ASPIRIN
     Indication: PRODUCT USED FOR UNKNOWN INDICATION
  25. METOPROLOL [Concomitant]
     Active Substance: METOPROLOL
     Indication: HORMONE REPLACEMENT THERAPY
  26. FINASTERIDE. [Concomitant]
     Active Substance: FINASTERIDE
     Indication: HORMONE REPLACEMENT THERAPY
  27. NITROGLYCERINE [Concomitant]
     Active Substance: NITROGLYCERIN
     Indication: CHEST PAIN

REACTIONS (3)
  - Gingival swelling [Not Recovered/Not Resolved]
  - Toothache [Not Recovered/Not Resolved]
  - Impaired healing [Not Recovered/Not Resolved]

NARRATIVE: CASE EVENT DATE: 201405
